FAERS Safety Report 10125421 (Version 2)
Quarter: 2014Q2

REPORT INFORMATION
  Report Type: Report from Study
  Country: US (occurrence: US)
  Receive Date: 20140425
  Receipt Date: 20140515
  Transmission Date: 20141212
  Serious: Yes (Hospitalization)
  Sender: FDA-Public Use
  Company Number: US-ACTELION-A-NJ2014-98113

PATIENT
  Age: 62 Year
  Sex: Female

DRUGS (2)
  1. TRACLEER [Suspect]
     Indication: CARDIAC SEPTAL DEFECT
     Dosage: UNK
     Route: 048
  2. VENTAVIS [Suspect]
     Indication: CARDIAC SEPTAL DEFECT
     Dosage: UNK
     Route: 055

REACTIONS (12)
  - Infection [Unknown]
  - Fibrosis [Unknown]
  - Pulmonary haemorrhage [Unknown]
  - Pulmonary oedema [Unknown]
  - Transplant evaluation [Unknown]
  - Pneumonia [Unknown]
  - Face oedema [Unknown]
  - Ascites [Unknown]
  - Fluid retention [Unknown]
  - Bladder disorder [Unknown]
  - Fatigue [Unknown]
  - Oedema peripheral [Unknown]
